FAERS Safety Report 5179911-8 (Version None)
Quarter: 2006Q4

REPORT INFORMATION
  Report Type: 
  Country: None (occurrence: None)
  Receive Date: 20061212
  Receipt Date: 20061129
  Transmission Date: 20070319
  Serious: Yes (Death)
  Sender: FDA-Public Use
  Company Number: 2006143303

PATIENT
  Age: 4 Year
  Sex: Female
  Weight: 11 kg

DRUGS (5)
  1. ZYVOX [Suspect]
     Indication: ENTEROCOCCAL INFECTION
     Dosage: 330 MG (110 MG, 3 IN 1 D); ORAL
     Route: 048
     Dates: start: 20060727, end: 20060825
  2. CEFOTETAN [Concomitant]
  3. IMIPENEM [Concomitant]
  4. TEICOPLANIN [Concomitant]
  5. METRONIDAZOLE [Concomitant]

REACTIONS (1)
  - SEPTIC SHOCK [None]
